FAERS Safety Report 15771825 (Version 1)
Quarter: 2018Q4

REPORT INFORMATION
  Report Type: Spontaneous
  Country: IT (occurrence: IT)
  Receive Date: 20181228
  Receipt Date: 20181228
  Transmission Date: 20190205
  Serious: Yes (Hospitalization)
  Sender: FDA-Public Use
  Company Number: IT-PFIZER INC-267880

PATIENT
  Age: 61 Year
  Sex: Female

DRUGS (1)
  1. EPSOCLAR [Suspect]
     Active Substance: HEPARIN SODIUM
     Indication: PULMONARY EMBOLISM
     Dosage: 18 IU/KG, UNK
     Route: 042
     Dates: start: 20090323, end: 20090324

REACTIONS (2)
  - Platelet count decreased [Recovered/Resolved]
  - Injection site haematoma [Recovered/Resolved]

NARRATIVE: CASE EVENT DATE: 20090324
